FAERS Safety Report 21773630 (Version 1)
Quarter: 2022Q4

REPORT INFORMATION
  Report Type: Spontaneous
  Country: US (occurrence: US)
  Receive Date: 20221223
  Receipt Date: 20221223
  Transmission Date: 20230113
  Serious: No
  Sender: FDA-Public Use
  Company Number: US-GILEAD-2022-0610031

PATIENT
  Age: 63 Year
  Sex: Female

DRUGS (19)
  1. DESCOVY [Suspect]
     Active Substance: EMTRICITABINE\TENOFOVIR ALAFENAMIDE FUMARATE
     Indication: HIV infection
     Dosage: 200/25 MG QD
     Route: 065
  2. TYBOST [Suspect]
     Active Substance: COBICISTAT
     Indication: HIV infection
     Dosage: 150 MG, BID
     Route: 065
  3. DARUNAVIR [Concomitant]
     Active Substance: DARUNAVIR
     Indication: HIV infection
  4. DOLUTEGRAVIR [Concomitant]
     Active Substance: DOLUTEGRAVIR
     Indication: HIV infection
     Dosage: 50 MG, BID
  5. FOSTEMSAVIR [Concomitant]
     Active Substance: FOSTEMSAVIR
     Indication: HIV infection
     Dosage: 600 MG, BID
  6. IBALIZUMAB [Concomitant]
     Active Substance: IBALIZUMAB
     Indication: HIV infection
     Dosage: 800 MG Q0WEEK
  7. APIXABAN [Concomitant]
     Active Substance: APIXABAN
  8. CLOPIDOGREL [Concomitant]
     Active Substance: CLOPIDOGREL BISULFATE
  9. DAPSONE [Concomitant]
     Active Substance: DAPSONE
  10. AZITHROMYCIN [Concomitant]
     Active Substance: AZITHROMYCIN
  11. CARVEDILOL [Concomitant]
     Active Substance: CARVEDILOL
  12. TELMISARTAN [Concomitant]
     Active Substance: TELMISARTAN
  13. ATORVASTATIN [Concomitant]
     Active Substance: ATORVASTATIN
  14. EZETIMIBE [Concomitant]
     Active Substance: EZETIMIBE
  15. FENOFIBRATE [Concomitant]
     Active Substance: FENOFIBRATE
  16. MINERALS\VITAMINS [Concomitant]
     Active Substance: MINERALS\VITAMINS
  17. CALCIUM [Concomitant]
     Active Substance: CALCIUM
  18. MAGNESIUM [Concomitant]
     Active Substance: MAGNESIUM
  19. VITAMIN D3 [Concomitant]
     Active Substance: CHOLECALCIFEROL

REACTIONS (1)
  - Treatment failure [Not Recovered/Not Resolved]
